FAERS Safety Report 14778499 (Version 1)
Quarter: 2018Q2

REPORT INFORMATION
  Report Type: Spontaneous
  Country: US (occurrence: US)
  Receive Date: 20180419
  Receipt Date: 20180419
  Transmission Date: 20180711
  Serious: Yes (Hospitalization)
  Sender: FDA-Public Use
  Company Number: US-PURDUE-USA-2018-0143343

PATIENT
  Age: 69 Year
  Sex: Male

DRUGS (9)
  1. LYRICA [Suspect]
     Active Substance: PREGABALIN
     Indication: NEUROPATHY PERIPHERAL
  2. IPRATROPIUM [Concomitant]
     Active Substance: IPRATROPIUM
     Indication: PRODUCT USED FOR UNKNOWN INDICATION
     Dosage: 21 MCG (2 SPRAYS), BID
     Route: 045
  3. LEVOTHYROXINE. [Concomitant]
     Active Substance: LEVOTHYROXINE
     Indication: PRODUCT USED FOR UNKNOWN INDICATION
     Dosage: 100 MCG, DAILY
     Route: 048
  4. METFORMIN [Concomitant]
     Active Substance: METFORMIN HYDROCHLORIDE
     Indication: PRODUCT USED FOR UNKNOWN INDICATION
     Dosage: 500 MG, BID
     Route: 048
  5. LYRICA [Suspect]
     Active Substance: PREGABALIN
     Indication: FIBROMYALGIA
     Dosage: 200 MG, TID
     Route: 048
  6. PROTONIX [Concomitant]
     Active Substance: PANTOPRAZOLE SODIUM
     Indication: PRODUCT USED FOR UNKNOWN INDICATION
     Dosage: 40 MG, DAILY
     Route: 048
  7. TAMSULOSIN [Concomitant]
     Active Substance: TAMSULOSIN
     Indication: PRODUCT USED FOR UNKNOWN INDICATION
     Dosage: 0.4 MG, DAILY
     Route: 048
  8. FENOFIBRATE. [Suspect]
     Active Substance: FENOFIBRATE
     Indication: PRODUCT USED FOR UNKNOWN INDICATION
     Dosage: 160 MG, DAILY
     Route: 048
  9. ATORVASTATIN [Concomitant]
     Active Substance: ATORVASTATIN
     Indication: PRODUCT USED FOR UNKNOWN INDICATION
     Dosage: 40 MG, DAILY
     Route: 048

REACTIONS (30)
  - Hypertension [Unknown]
  - Dehydration [Unknown]
  - Anaemia [Unknown]
  - Poor personal hygiene [Unknown]
  - Skin abrasion [Unknown]
  - Pain [Unknown]
  - Metabolic encephalopathy [Unknown]
  - Hypernatraemia [Unknown]
  - Sepsis [Unknown]
  - Surgery [Unknown]
  - Metabolic acidosis [Unknown]
  - Hyperglycaemia [Unknown]
  - Skin infection [Unknown]
  - Myocardial infarction [Unknown]
  - Rhabdomyolysis [Unknown]
  - Erythema [Unknown]
  - Aggression [Unknown]
  - Colon injury [Unknown]
  - Postoperative wound infection [Unknown]
  - Gastrointestinal haemorrhage [Unknown]
  - Atelectasis [Unknown]
  - Intentional self-injury [Recovering/Resolving]
  - Consciousness fluctuating [Recovering/Resolving]
  - Anal incontinence [Unknown]
  - Back pain [Unknown]
  - Abdominal infection [Unknown]
  - Suicide attempt [Recovering/Resolving]
  - Urinary incontinence [Unknown]
  - Splenomegaly [Unknown]
  - Urinary tract infection [Unknown]

NARRATIVE: CASE EVENT DATE: 20170702
